FAERS Safety Report 5764342-X (Version None)
Quarter: 2008Q2

REPORT INFORMATION
  Report Type: 
  Country: None (occurrence: None)
  Receive Date: 20080610
  Receipt Date: 20080603
  Transmission Date: 20081010
  Serious: Yes (Hospitalization)
  Sender: FDA-Public Use
  Company Number: JP-BOEHRINGER INGELHEIM GMBH, GERMANY-2008-BP-04764NB

PATIENT
  Sex: Female
  Weight: 45 kg

DRUGS (11)
  1. PRAMIPEXOLE DIHYDROCHLORIDE [Suspect]
     Indication: PARKINSON'S DISEASE
     Route: 048
     Dates: start: 20060801
  2. MENESIT [Suspect]
     Indication: PARKINSON'S DISEASE
     Route: 048
     Dates: start: 20021024
  3. SYMMETREL [Suspect]
     Indication: PARKINSON'S DISEASE
     Route: 048
     Dates: start: 20070315
  4. EXCEGRAN [Suspect]
     Indication: PARKINSON'S DISEASE
     Route: 048
     Dates: start: 20070822
  5. DOPS [Suspect]
     Indication: PARKINSON'S DISEASE
     Route: 048
     Dates: start: 20021024
  6. REQUIP [Suspect]
     Indication: PARKINSON'S DISEASE
     Route: 048
     Dates: start: 20071219, end: 20080122
  7. ALSETIN [Suspect]
     Indication: HYPERLIPIDAEMIA
     Route: 048
     Dates: start: 20070305
  8. BLADDERON [Concomitant]
     Indication: NEUROGENIC BLADDER
     Route: 048
     Dates: start: 20060801
  9. YOKU-KAN-SAN [Concomitant]
     Indication: ANXIETY
     Route: 048
     Dates: start: 20060114
  10. GLYSENNID [Concomitant]
     Indication: CONSTIPATION
     Route: 048
     Dates: start: 20021024
  11. CINAL [Concomitant]
     Indication: PARKINSON'S DISEASE
     Route: 048
     Dates: start: 20070305

REACTIONS (11)
  - ARTHRALGIA [None]
  - ARTICULAR CALCIFICATION [None]
  - CHONDROCALCINOSIS PYROPHOSPHATE [None]
  - DERMATITIS EXFOLIATIVE [None]
  - DRY SKIN [None]
  - DYSSTASIA [None]
  - ERYTHEMA [None]
  - GAIT DISTURBANCE [None]
  - HYPERLIPIDAEMIA [None]
  - HYPOAESTHESIA [None]
  - PAIN IN EXTREMITY [None]
